FAERS Safety Report 6813346-4 (Version None)
Quarter: 2010Q3

REPORT INFORMATION
  Report Type: 
  Country: None (occurrence: None)
  Receive Date: 20100701
  Receipt Date: 20100701
  Transmission Date: 20110219
  Serious: Yes (Hospitalization, Disabling)
  Sender: FDA-Public Use
  Company Number: US-JNJFOC-20081105653

PATIENT
  Sex: Male
  Weight: 101.15 kg

DRUGS (12)
  1. LEVAQUIN [Suspect]
     Indication: INFECTION PROPHYLAXIS
     Route: 048
  2. LEVAQUIN [Suspect]
     Route: 048
  3. LEVAQUIN [Suspect]
     Dosage: 750MG FOR A PERIOD OF 14 DAYS
     Route: 048
  4. LEVAQUIN [Suspect]
     Indication: PAIN IN EXTREMITY
     Route: 048
  5. LEVAQUIN [Suspect]
     Route: 048
  6. LEVAQUIN [Suspect]
     Dosage: 750MG FOR A PERIOD OF 14 DAYS
     Route: 048
  7. LEVAQUIN [Suspect]
     Indication: INJURY
     Route: 048
  8. LEVAQUIN [Suspect]
     Dosage: 750MG FOR A PERIOD OF 14 DAYS
     Route: 048
  9. LEVAQUIN [Suspect]
     Route: 048
  10. LEVAQUIN [Suspect]
     Indication: SINUSITIS
     Route: 048
  11. LEVAQUIN [Suspect]
     Dosage: 750MG FOR A PERIOD OF 14 DAYS
     Route: 048
  12. LEVAQUIN [Suspect]
     Route: 048

REACTIONS (6)
  - BURSITIS [None]
  - SKIN ATROPHY [None]
  - TENDON DISORDER [None]
  - TENDON RUPTURE [None]
  - TENDONITIS [None]
  - TENOSYNOVITIS [None]
